FAERS Safety Report 6227243-9 (Version None)
Quarter: 2009Q2

REPORT INFORMATION
  Report Type: 
  Country: None (occurrence: None)
  Receive Date: 20090612
  Receipt Date: 20090528
  Transmission Date: 20091009
  Serious: Yes (Hospitalization, Other)
  Sender: FDA-Public Use
  Company Number: US-ABBOTT-09P-163-0576648-00

PATIENT
  Sex: Female
  Weight: 90.8 kg

DRUGS (3)
  1. HUMIRA [Suspect]
     Indication: RHEUMATOID ARTHRITIS
     Route: 058
     Dates: start: 20090301, end: 20090501
  2. PLAQUENIL [Concomitant]
     Indication: SJOGREN'S SYNDROME
  3. CORTEF [Concomitant]
     Indication: ADDISON'S DISEASE
     Route: 048

REACTIONS (10)
  - ASTHENIA [None]
  - CHILLS [None]
  - CONFUSIONAL STATE [None]
  - DIPLOPIA [None]
  - DYSPNOEA [None]
  - EAR INFECTION [None]
  - MENINGITIS BACTERIAL [None]
  - OSTEOMYELITIS [None]
  - PNEUMONIA [None]
  - SINUSITIS [None]
